FAERS Safety Report 4654713-7 (Version None)
Quarter: 2005Q2

REPORT INFORMATION
  Report Type: 
  Country: None (occurrence: None)
  Receive Date: 20050506
  Receipt Date: 20050309
  Transmission Date: 20051028
  Serious: Yes (Other)
  Sender: FDA-Public Use
  Company Number: 200511923US

PATIENT
  Sex: Female

DRUGS (13)
  1. LOVENOX [Suspect]
     Indication: THROMBOSIS
     Dosage: DOSE: UNK
     Dates: start: 20050222, end: 20050222
  2. TESTOSTERONE [Concomitant]
     Dosage: DOSE: UNK
  3. METFORMIN [Concomitant]
     Dosage: DOSE: UNK
  4. LITHIUM [Concomitant]
     Route: 048
  5. WELLBUTRIN [Concomitant]
     Route: 048
  6. TRAZODONE HCL [Concomitant]
     Route: 048
  7. CLONOPIN [Concomitant]
     Route: 048
  8. LAMICTAL [Concomitant]
     Dosage: DOSE: UNK
  9. PERCOCET [Concomitant]
     Dosage: DOSE: 10/325
     Route: 048
  10. ASPIRIN [Concomitant]
     Dosage: DOSE: UNK
  11. IBUPROFEN [Concomitant]
     Dosage: DOSE: UNK
  12. SEROQUEL [Concomitant]
     Dosage: DOSE: 25-50
     Route: 048
  13. DELATESTRYL [Concomitant]
     Dosage: DOSE: UNK

REACTIONS (10)
  - ANXIETY [None]
  - CELLULITIS [None]
  - HYPERSENSITIVITY [None]
  - INJECTION SITE HAEMORRHAGE [None]
  - INJECTION SITE INDURATION [None]
  - INJECTION SITE MASS [None]
  - PITTING OEDEMA [None]
  - PRURITUS [None]
  - RASH [None]
  - SKIN BURNING SENSATION [None]
